FAERS Safety Report 4806532-6 (Version None)
Quarter: 2005Q4

REPORT INFORMATION
  Report Type: 
  Country: None (occurrence: None)
  Receive Date: 20051019
  Receipt Date: 20051005
  Transmission Date: 20060501
  Serious: Yes (Death, Hospitalization, Disabling, Other)
  Sender: FDA-Public Use
  Company Number: WAES 0502NOR00013

PATIENT
  Age: 86 Year
  Sex: Male

DRUGS (10)
  1. COZAAR [Suspect]
     Indication: CARDIAC FAILURE CONGESTIVE
     Dosage: 12.5 MG/DAILY PO
     Route: 048
     Dates: start: 20050126, end: 20050201
  2. BUMETANIDE [Concomitant]
  3. ESIDRIX [Concomitant]
  4. MONOKET [Concomitant]
  5. PLAVIX [Concomitant]
  6. SELO-ZOK [Concomitant]
  7. ZOCOR [Concomitant]
  8. ASPIRIN [Concomitant]
  9. NITROGLYCERIN [Concomitant]
  10. SPIRONOLACTONE [Concomitant]

REACTIONS (9)
  - ACUTE PRERENAL FAILURE [None]
  - BUNDLE BRANCH BLOCK LEFT [None]
  - CARDIAC FAILURE [None]
  - CONDITION AGGRAVATED [None]
  - DIARRHOEA [None]
  - DISCOMFORT [None]
  - DYSPNOEA [None]
  - HYPOTENSION [None]
  - OEDEMA PERIPHERAL [None]
